FAERS Safety Report 24712158 (Version 3)
Quarter: 2025Q1

REPORT INFORMATION
  Report Type: Spontaneous
  Country: US (occurrence: US)
  Receive Date: 20241209
  Receipt Date: 20250220
  Transmission Date: 20250408
  Serious: Yes (Other)
  Sender: PFIZER
  Company Number: US-PFIZER INC-202400174907

PATIENT
  Age: 69 Year
  Sex: Female

DRUGS (3)
  1. MEKTOVI [Suspect]
     Active Substance: BINIMETINIB
     Indication: Metastatic malignant melanoma
     Dosage: 45 MG, 2X/DAY (TAKE 3 TAB PO TWICE DAILY)
     Route: 048
     Dates: start: 20230522
  2. BRAFTOVI [Suspect]
     Active Substance: ENCORAFENIB
     Indication: Metastatic malignant melanoma
     Dosage: 450 MG, DAILY (TAKE 6 CAPSULES PO DAILY)
     Route: 048
     Dates: start: 20230522
  3. TYLENOL [Concomitant]
     Active Substance: ACETAMINOPHEN

REACTIONS (8)
  - Pancreatitis [Unknown]
  - Second primary malignancy [Unknown]
  - Neoplasm malignant [Unknown]
  - Nausea [Unknown]
  - Ureterolithiasis [Unknown]
  - Pollakiuria [Unknown]
  - Blood lactate dehydrogenase increased [Recovered/Resolved]
  - Lipase increased [Recovered/Resolved]

NARRATIVE: CASE EVENT DATE: 20231116
